FAERS Safety Report 5920176-4 (Version None)
Quarter: 2008Q4

REPORT INFORMATION
  Report Type: 
  Country: None (occurrence: None)
  Receive Date: 20081016
  Receipt Date: 20080927
  Transmission Date: 20090506
  Serious: Yes (Other)
  Sender: FDA-Public Use
  Company Number: US-BAYER-200827836GPV

PATIENT

DRUGS (4)
  1. SORAFENIB [Suspect]
     Indication: METASTATIC RENAL CELL CARCINOMA
     Route: 048
  2. SORAFENIB [Suspect]
     Route: 048
  3. BEVACIZUMAB [Suspect]
     Indication: METASTATIC RENAL CELL CARCINOMA
     Route: 042
  4. BEVACIZUMAB [Suspect]
     Route: 042

REACTIONS (10)
  - ACUTE MYOCARDIAL INFARCTION [None]
  - ANOREXIA [None]
  - HYPERTENSION [None]
  - PALMAR-PLANTAR ERYTHRODYSAESTHESIA SYNDROME [None]
  - PEPTIC ULCER [None]
  - PERFORMANCE STATUS DECREASED [None]
  - PROTEINURIA [None]
  - RASH [None]
  - TRANSIENT ISCHAEMIC ATTACK [None]
  - WEIGHT DECREASED [None]
